FAERS Safety Report 9931546 (Version 1)
Quarter: 2014Q1

REPORT INFORMATION
  Report Type: Spontaneous
  Country: US (occurrence: None)
  Receive Date: 20140227
  Receipt Date: 20140227
  Transmission Date: 20141002
  Serious: Yes (Death)
  Sender: FDA-Public Use
  Company Number: None

PATIENT
  Age: 56 Year
  Sex: Female
  Weight: 71.6 kg

DRUGS (4)
  1. LITHIUM [Suspect]
     Indication: ACUTE MYELOID LEUKAEMIA
     Dosage: 300 MG DAILY PO DAILY
     Route: 048
     Dates: start: 20131230, end: 20140122
  2. LITHIUM [Suspect]
     Indication: LEUKAEMIA RECURRENT
     Dosage: 300 MG DAILY PO DAILY
     Route: 048
     Dates: start: 20131230, end: 20140122
  3. TRETINOIN [Suspect]
     Indication: ACUTE MYELOID LEUKAEMIA
     Dosage: 20 MG 2X/D;D 1-7, 15-21?12/30/13-1/5/14; 1/13-19/
     Dates: start: 20131230, end: 20140105
  4. TRETINOIN [Suspect]
     Indication: LEUKAEMIA RECURRENT
     Dosage: 20 MG 2X/D;D 1-7, 15-21?12/30/13-1/5/14; 1/13-19/
     Dates: start: 20131230, end: 20140105

REACTIONS (2)
  - No therapeutic response [None]
  - Performance status decreased [None]
